FAERS Safety Report 24141410 (Version 3)
Quarter: 2024Q4

REPORT INFORMATION
  Report Type: Spontaneous
  Country: FR (occurrence: FR)
  Receive Date: 20240726
  Receipt Date: 20241219
  Transmission Date: 20250114
  Serious: No
  Sender: Kenvue
  Company Number: None

PATIENT
  Age: 22 Year
  Sex: Female
  Weight: 94 kg

DRUGS (14)
  1. CETIRIZINE HYDROCHLORIDE [Suspect]
     Active Substance: CETIRIZINE HYDROCHLORIDE
     Indication: Cystic fibrosis
     Dosage: 20 MILLIGRAM, ONCE A DAY
     Route: 065
     Dates: start: 20231029
  2. AMBROXOL HYDROCHLORIDE [Suspect]
     Active Substance: AMBROXOL HYDROCHLORIDE
     Indication: Cystic fibrosis
     Route: 065
     Dates: start: 20240516
  3. PULMOZYME [Suspect]
     Active Substance: DORNASE ALFA
     Indication: Cystic fibrosis
     Dosage: 1 DOSAGE FORM, ONCE A DAY
     Route: 065
     Dates: start: 20231029, end: 20240516
  4. CREON [Suspect]
     Active Substance: PANCRELIPASE AMYLASE\PANCRELIPASE LIPASE\PANCRELIPASE PROTEASE
     Indication: Cystic fibrosis
     Dosage: 15 DOSAGE FORM, ONCE A DAY
     Route: 065
     Dates: start: 20231029
  5. ESOMEPRAZOLE [Suspect]
     Active Substance: ESOMEPRAZOLE
     Indication: Cystic fibrosis
     Dosage: 20 MILLIGRAM, ONCE A DAY
     Route: 065
     Dates: start: 20231029
  6. ELEXACAFTOR\IVACAFTOR\TEZACAFTOR [Suspect]
     Active Substance: ELEXACAFTOR\IVACAFTOR\TEZACAFTOR
     Indication: Cystic fibrosis
     Dosage: 2 DOSAGE FORM, ONCE A DAY
     Route: 065
     Dates: start: 20231029
  7. COLISTIMETHATE SODIUM [Suspect]
     Active Substance: COLISTIMETHATE SODIUM
     Indication: Cystic fibrosis
     Dosage: FREQUENCY: 1 FREQUENCY TIME: 12 FREQUENCY TIME UNIT: HOURS
     Route: 065
     Dates: start: 20231029
  8. SINGULAIR [Suspect]
     Active Substance: MONTELUKAST SODIUM
     Indication: Cystic fibrosis
     Route: 065
     Dates: start: 20240516
  9. INNOVAIR [Suspect]
     Active Substance: BECLOMETHASONE DIPROPIONATE\FORMOTEROL
     Indication: Cystic fibrosis
     Dosage: FREQUENCY: 1 FREQUENCY TIME: 12 FREQUENCY TIME UNIT: HOURS
     Route: 065
     Dates: start: 20231029
  10. ALBUTEROL [Suspect]
     Active Substance: ALBUTEROL
     Indication: Cystic fibrosis
     Dosage: FREQUENCY: 1 FREQUENCY TIME: 1 FREQUENCY TIME UNIT: AS REQUIRED
     Route: 065
     Dates: start: 20231029, end: 20240510
  11. SPIRIVA RESPIMAT [Suspect]
     Active Substance: TIOTROPIUM BROMIDE
     Indication: Cystic fibrosis
     Route: 065
     Dates: start: 20231029
  12. KALYDECO [Suspect]
     Active Substance: IVACAFTOR
     Indication: Cystic fibrosis
     Route: 065
     Dates: start: 20231029
  13. PANCRELIPASE [Suspect]
     Active Substance: PANCRELIPASE
     Indication: Cystic fibrosis
     Dosage: FREQUENCY: 1 FREQUENCY TIME: 8 FREQUENCY TIME UNIT: HOURS
     Route: 065
     Dates: start: 20231029
  14. IPRATROPIUM BROMIDE\FENOTEROL HYDROBROMIDE [Suspect]
     Active Substance: FENOTEROL HYDROBROMIDE\IPRATROPIUM BROMIDE
     Indication: Cystic fibrosis
     Dosage: FREQUENCY: 1 FREQUENCY TIME: 8 FREQUENCY TIME UNIT: HOURS
     Route: 065
     Dates: start: 20240516

REACTIONS (2)
  - Maternal exposure during pregnancy [Recovered/Resolved]
  - Amniotic fluid index increased [Recovered/Resolved]

NARRATIVE: CASE EVENT DATE: 20240606
